FAERS Safety Report 21513495 (Version 1)
Quarter: 2022Q4

REPORT INFORMATION
  Report Type: Spontaneous
  Country: US (occurrence: None)
  Receive Date: 20221026
  Receipt Date: 20221026
  Transmission Date: 20230113
  Serious: Yes (Death)
  Sender: FDA-Public Use
  Company Number: None

PATIENT
  Age: 68 Year
  Sex: Female

DRUGS (1)
  1. PROMACTA [Suspect]
     Active Substance: ELTROMBOPAG OLAMINE
     Indication: Pancytopenia
     Dosage: 12.5MG QD ORAL
     Route: 048
     Dates: start: 20151001, end: 20221011

REACTIONS (2)
  - Cellulitis [None]
  - Hypotension [None]

NARRATIVE: CASE EVENT DATE: 20221011
